FAERS Safety Report 18355893 (Version 1)
Quarter: 2020Q4

REPORT INFORMATION
  Report Type: Spontaneous
  Country: GB (occurrence: GB)
  Receive Date: 20201007
  Receipt Date: 20201007
  Transmission Date: 20210114
  Serious: Yes (Death, Other)
  Sender: FDA-Public Use
  Company Number: GB-JNJFOC-20201003196

PATIENT
  Age: 70 Year
  Sex: Female

DRUGS (4)
  1. SILDENAFIL. [Concomitant]
     Active Substance: SILDENAFIL
     Dosage: 25 MG, TID
  2. SILDENAFIL. [Concomitant]
     Active Substance: SILDENAFIL
     Dosage: 75 MG, TID
  3. MACITENTAN [Suspect]
     Active Substance: MACITENTAN
     Indication: PULMONARY ARTERIAL HYPERTENSION
     Dosage: 10 MG, QD
     Route: 048
  4. EPOPROSTENOL. [Suspect]
     Active Substance: EPOPROSTENOL

REACTIONS (5)
  - Pneumonia [Fatal]
  - Interstitial lung disease [Unknown]
  - Pulmonary arterial hypertension [Unknown]
  - Scleroderma [Unknown]
  - Cerebral infarction [Fatal]
